FAERS Safety Report 9461201 (Version 1)
Quarter: 2013Q3

REPORT INFORMATION
  Report Type: Report from Study
  Country: EC (occurrence: EC)
  Receive Date: 20130816
  Receipt Date: 20130816
  Transmission Date: 20140515
  Serious: Yes (Other)
  Sender: FDA-Public Use
  Company Number: EC-ROCHE-1261395

PATIENT
  Sex: Female

DRUGS (1)
  1. IBANDRONIC ACID [Suspect]
     Indication: OSTEOPOROSIS
     Route: 042
     Dates: start: 20130216

REACTIONS (2)
  - Loose tooth [Not Recovered/Not Resolved]
  - Tooth disorder [Unknown]
